FAERS Safety Report 8141961-7 (Version None)
Quarter: 2012Q1

REPORT INFORMATION
  Report Type: 
  Country: None (occurrence: None)
  Receive Date: 20120216
  Receipt Date: 20120210
  Transmission Date: 20120608
  Serious: Yes (Other)
  Sender: FDA-Public Use
  Company Number: SE-GLAXOSMITHKLINE-B0781916A

PATIENT
  Age: 60 Year
  Sex: Male

DRUGS (2)
  1. REQUIP CR [Suspect]
     Indication: PARKINSON'S DISEASE
     Dosage: 4MG PER DAY
     Route: 065
  2. L-DOPA [Concomitant]
     Indication: PARKINSON'S DISEASE
     Dosage: 300MG PER DAY

REACTIONS (2)
  - SYNCOPE [None]
  - FALL [None]
